FAERS Safety Report 4474606-8 (Version None)
Quarter: 2004Q4

REPORT INFORMATION
  Report Type: 
  Country: None (occurrence: None)
  Receive Date: 20041014
  Receipt Date: 20040920
  Transmission Date: 20050328
  Serious: Yes (Hospitalization)
  Sender: FDA-Public Use
  Company Number: PHBS2004BE12328

PATIENT
  Age: 34 Year
  Sex: Male
  Weight: 65 kg

DRUGS (3)
  1. LAMISIL [Suspect]
     Indication: NAIL TINEA
     Dosage: 14 G, ONCE/SINGLE
     Route: 048
     Dates: start: 20040919, end: 20040919
  2. LAMISIL [Suspect]
     Dosage: UNK, UNK
     Route: 048
     Dates: start: 20040915
  3. LEXOTAN [Concomitant]
     Dosage: 6 MG/D
     Route: 065

REACTIONS (2)
  - INTENTIONAL OVERDOSE [None]
  - SUICIDE ATTEMPT [None]
